FAERS Safety Report 21212453 (Version 1)
Quarter: 2022Q3

REPORT INFORMATION
  Report Type: Spontaneous
  Country: US (occurrence: None)
  Receive Date: 20220812
  Receipt Date: 20220812
  Transmission Date: 20221027
  Serious: Yes (Hospitalization)
  Sender: FDA-Public Use
  Company Number: None

PATIENT
  Age: 54 Year
  Sex: Male
  Weight: 141 kg

DRUGS (2)
  1. AMOXICILLIN AND CLAVULANATE POTASSIUM [Suspect]
     Active Substance: AMOXICILLIN\CLAVULANATE POTASSIUM
     Indication: Otitis media acute
     Dosage: OTHER QUANTITY : 875/125 MG;?FREQUENCY : TWICE A DAY;?
     Route: 048
     Dates: start: 20220121, end: 20220128
  2. TOPIRAMATE [Suspect]
     Active Substance: TOPIRAMATE
     Indication: Headache
     Dosage: OTHER FREQUENCY : HS;?AT BEDTIME
     Route: 048
     Dates: start: 20090209

REACTIONS (6)
  - Diarrhoea [None]
  - Nausea [None]
  - Pruritus [None]
  - Abdominal pain [None]
  - Ocular icterus [None]
  - Hepatic enzyme increased [None]

NARRATIVE: CASE EVENT DATE: 20220308
